FAERS Safety Report 11113049 (Version 1)
Quarter: 2015Q2

REPORT INFORMATION
  Report Type: Spontaneous
  Country: US (occurrence: US)
  Receive Date: 20150514
  Receipt Date: 20150514
  Transmission Date: 20150821
  Serious: No
  Sender: FDA-Public Use
  Company Number: US-ELI_LILLY_AND_COMPANY-US201505000529

PATIENT
  Age: 88 Year
  Sex: Male

DRUGS (5)
  1. TERIPARATIDE [Suspect]
     Active Substance: TERIPARATIDE
     Indication: OSTEOPOROSIS
     Dosage: UNK, QD
     Route: 065
     Dates: start: 201412, end: 20150504
  2. XYZAL [Suspect]
     Active Substance: LEVOCETIRIZINE DIHYDROCHLORIDE
     Indication: PRURITUS
  3. THYROID [Concomitant]
     Active Substance: LEVOTHYROXINE\LIOTHYRONINE
     Dosage: 175 UG, UNKNOWN
  4. FISH OIL [Concomitant]
     Active Substance: FISH OIL
  5. PRILOSEC [Concomitant]
     Active Substance: OMEPRAZOLE MAGNESIUM

REACTIONS (7)
  - Mental status changes [Unknown]
  - Balance disorder [Unknown]
  - Anaemia [Unknown]
  - Sedation [Unknown]
  - Occult blood positive [Unknown]
  - Pruritus [Unknown]
  - Allergy to metals [Unknown]

NARRATIVE: CASE EVENT DATE: 201412
